FAERS Safety Report 9525602 (Version 1)
Quarter: 2013Q1

REPORT INFORMATION
  Report Type: Spontaneous
  Country: US (occurrence: None)
  Receive Date: 20130305
  Receipt Date: 20130305
  Transmission Date: 20140127
  Serious: Yes (Hospitalization)
  Sender: FDA-Public Use
  Company Number: 163-21880-12023079

PATIENT
  Age: 83 Year
  Sex: Male

DRUGS (13)
  1. REVLIMID (LENALIDOMIDE) (CAPSULES) [Suspect]
     Indication: PLASMA CELL MYELOMA
     Dosage: 15 MG, 21 IN 28 D, PO
     Route: 048
     Dates: start: 201201
  2. ALLOPURINOL (ALLOPRUINOL) (UNKNOWN) [Concomitant]
  3. AMBIEN (ZOLPIDEM TARTTRATE) (UNKNOWN) [Concomitant]
  4. BACTRIM (BACTRIM) (UNKNOWN) [Concomitant]
  5. BUMETANIDE (BUMETANIDE) (UNKNOWN) [Concomitant]
  6. ECOTRIN (ACETYLSALICYLIC ACID) (UNKNOWN) [Concomitant]
  7. HUMALOG (INSULIN LISPRO) (UNKNOWN) [Concomitant]
  8. ISOSORBIDE (ISOSORBIDE) (UNKNOWN) [Concomitant]
  9. LANTUS (INSULIN GLARGINE) (UNKNOWN) [Concomitant]
  10. LIPITOR (ATORVASTATIN) (UNKNOWN) [Concomitant]
  11. NEXIUM (ESOMEPRAZOLE) (UNKNOWN) [Concomitant]
  12. RAMIPRIL (RAMIPRIL) (UNKNOWN) [Concomitant]
  13. VITAMIN B6 (PYRIDOXINE HYDROCHLORIDE) (UNKNOWN) [Concomitant]

REACTIONS (2)
  - Pancytopenia [None]
  - Contusion [None]
